FAERS Safety Report 4711003-1 (Version None)
Quarter: 2005Q3

REPORT INFORMATION
  Report Type: 
  Country: None (occurrence: None)
  Receive Date: 20050711
  Receipt Date: 20050704
  Transmission Date: 20060218
  Serious: Yes (Other)
  Sender: FDA-Public Use
  Company Number: PHNR2005AU01063

PATIENT
  Age: 81 Year
  Sex: Female

DRUGS (10)
  1. TEGRETOL [Suspect]
     Dosage: 400 MG, DAILY
     Route: 048
     Dates: start: 20040426, end: 20040503
  2. SPIRONOLACTONE [Suspect]
     Dosage: 25 MG, DAILY
     Route: 048
     Dates: start: 20040421, end: 20040401
  3. CLOPIDOGREL BISULFATE [Concomitant]
     Indication: MYOCARDIAL ISCHAEMIA
     Dosage: 75.0 MG, DAILY, LONG TERM USER
     Route: 048
  4. SOMAC [Concomitant]
     Indication: OESOPHAGEAL DISORDER
     Dosage: 40 MG
     Route: 048
  5. AROPAX [Concomitant]
     Indication: DEPRESSION
     Dosage: 20 MG, DAILY
     Route: 048
  6. AMIODARONE HYDROCHLORIDE [Concomitant]
     Dosage: 200 MG
     Route: 048
  7. CALTRATE [Concomitant]
     Indication: OSTEOPOROSIS
     Dosage: 1.0 DOSE UNSPECIFIED
  8. GLYCERYL TRINITRATE [Concomitant]
     Indication: MYOCARDIAL ISCHAEMIA
     Dosage: 50.0 MG
     Route: 061
  9. FRUSEMIDE [Concomitant]
     Indication: CARDIAC FAILURE CONGESTIVE
     Dosage: 80.0 MG
  10. RAMIPRIL [Concomitant]
     Indication: CARDIAC FAILURE CONGESTIVE
     Dosage: 5.0 MG

REACTIONS (2)
  - HYPERKALAEMIA [None]
  - HYPONATRAEMIA [None]
